FAERS Safety Report 10024219 (Version 2)
Quarter: 2014Q1

REPORT INFORMATION
  Report Type: Spontaneous
  Country: JP (occurrence: JP)
  Receive Date: 20140320
  Receipt Date: 20140326
  Transmission Date: 20141002
  Serious: Yes (Hospitalization)
  Sender: FDA-Public Use
  Company Number: JP-ASTRAZENECA-2014SE18216

PATIENT
  Age: 45 Year
  Sex: Female

DRUGS (4)
  1. OMEPRAL [Suspect]
     Indication: HELICOBACTER INFECTION
     Route: 048
     Dates: start: 20130827, end: 20130902
  2. CLARITHROMYCIN [Suspect]
     Indication: HELICOBACTER INFECTION
     Route: 065
     Dates: start: 20130827, end: 20130902
  3. AMOXICILLIN HYDRATE [Suspect]
     Indication: HELICOBACTER INFECTION
     Route: 065
     Dates: start: 20130827, end: 20130902
  4. FOSMICIN [Suspect]

REACTIONS (1)
  - Enterocolitis haemorrhagic [Recovered/Resolved]
